FAERS Safety Report 12733632 (Version 1)
Quarter: 2016Q3

REPORT INFORMATION
  Report Type: Spontaneous
  Country: US (occurrence: US)
  Receive Date: 20160912
  Receipt Date: 20160912
  Transmission Date: 20161109
  Serious: Yes (Hospitalization, Other)
  Sender: FDA-Public Use
  Company Number: US-009507513-1609USA002032

PATIENT
  Age: 57 Year
  Sex: Male

DRUGS (1)
  1. ZEPATIER [Suspect]
     Active Substance: ELBASVIR\GRAZOPREVIR
     Indication: HEPATITIS C
     Dosage: 1 DF, QD
     Route: 048
     Dates: start: 20160628, end: 20160831

REACTIONS (3)
  - Loss of consciousness [Unknown]
  - Subdural haematoma [Unknown]
  - Headache [Recovering/Resolving]

NARRATIVE: CASE EVENT DATE: 2016
